FAERS Safety Report 15944932 (Version 1)
Quarter: 2019Q1

REPORT INFORMATION
  Report Type: Report from Study
  Country: US (occurrence: US)
  Receive Date: 20190211
  Receipt Date: 20190211
  Transmission Date: 20190417
  Serious: No
  Sender: FDA-Public Use
  Company Number: US-ACADIA PHARMACEUTICALS INC.-ACA-2018-011034

PATIENT
  Age: 64 Year
  Sex: Male

DRUGS (1)
  1. NUPLAZID [Suspect]
     Active Substance: PIMAVANSERIN TARTRATE
     Indication: PRODUCT USED FOR UNKNOWN INDICATION
     Dosage: 34 MG, QD
     Route: 048
     Dates: start: 20181106

REACTIONS (11)
  - Condition aggravated [Unknown]
  - Cough [Unknown]
  - Sleep terror [Unknown]
  - Screaming [Unknown]
  - Respiratory tract congestion [Unknown]
  - Dysphagia [Unknown]
  - Hallucination [Unknown]
  - Oral discomfort [Unknown]
  - Restlessness [Unknown]
  - Asthenia [Unknown]
  - Abnormal behaviour [Unknown]

NARRATIVE: CASE EVENT DATE: 2018
